FAERS Safety Report 9674579 (Version 1)
Quarter: 2013Q4

REPORT INFORMATION
  Report Type: Other
  Country: DE (occurrence: DE)
  Receive Date: 20131107
  Receipt Date: 20131107
  Transmission Date: 20140711
  Serious: Yes (Other)
  Sender: FDA-Public Use
  Company Number: DE-SUN PHARMACEUTICAL INDUSTRIES LTD-2013SUN04944

PATIENT
  Age: 42 Year
  Sex: Female
  Weight: 103 kg

DRUGS (5)
  1. PANTOPRAZOL SUN 40 MG PULVER ZUR HERSTELLUNG EINER INJEKTIONSL?SUNG [Suspect]
     Indication: GASTROINTESTINAL ULCER
     Dosage: 40 MG, OD
     Route: 042
     Dates: start: 20130811, end: 20131002
  2. PANTOPRAZOL [Suspect]
     Indication: PROPHYLAXIS
  3. PANTOPRAZOLE [Suspect]
     Indication: GASTROINTESTINAL ULCER
     Dosage: 40 MG, OD
     Route: 048
     Dates: start: 20130811, end: 20131002
  4. PANTOPRAZOLE [Suspect]
     Indication: PROPHYLAXIS
  5. NOVAMINSULFON [Suspect]
     Indication: PAIN
     Dosage: 4 G, QD
     Route: 042
     Dates: start: 20130821, end: 20131002

REACTIONS (1)
  - Agranulocytosis [Recovered/Resolved]
